FAERS Safety Report 17024259 (Version 1)
Quarter: 2019Q4

REPORT INFORMATION
  Report Type: Spontaneous
  Country: GB (occurrence: GB)
  Receive Date: 20191113
  Receipt Date: 20191113
  Transmission Date: 20200122
  Serious: Yes (Hospitalization, Disabling, Other)
  Sender: FDA-Public Use
  Company Number: GB-SUN PHARMACEUTICAL INDUSTRIES LTD-2019RR-227303

PATIENT
  Age: 73 Year
  Sex: Male

DRUGS (2)
  1. CITALOPRAM [Suspect]
     Active Substance: CITALOPRAM HYDROBROMIDE
     Indication: INSOMNIA
     Dosage: 20 MILLIGRAM, UNK
     Route: 048
     Dates: start: 20160414, end: 20160415
  2. BENDROFLUMETHIAZIDE [Suspect]
     Active Substance: BENDROFLUMETHIAZIDE
     Indication: PRODUCT USED FOR UNKNOWN INDICATION
     Dosage: UNK
     Route: 065

REACTIONS (16)
  - Drug interaction [Unknown]
  - Dysarthria [Unknown]
  - Muscle rigidity [Unknown]
  - Hyponatraemia [Not Recovered/Not Resolved]
  - Balance disorder [Unknown]
  - Gait disturbance [Unknown]
  - Confusional state [Unknown]
  - Tremor [Unknown]
  - Posture abnormal [Unknown]
  - Hallucination [Unknown]
  - Communication disorder [Unknown]
  - Brain injury [Unknown]
  - Seizure [Unknown]
  - Hypersensitivity [Not Recovered/Not Resolved]
  - Atrioventricular block complete [Unknown]
  - Parkinsonism [Not Recovered/Not Resolved]
